FAERS Safety Report 22961237 (Version 2)
Quarter: 2023Q4

REPORT INFORMATION
  Report Type: Spontaneous
  Country: DE (occurrence: DE)
  Receive Date: 20230920
  Receipt Date: 20231005
  Transmission Date: 20240109
  Serious: Yes (Other)
  Sender: FDA-Public Use
  Company Number: None

PATIENT
  Age: 40 Year
  Sex: Female

DRUGS (4)
  1. CITALOPRAM [Interacting]
     Active Substance: CITALOPRAM HYDROBROMIDE
     Indication: Product used for unknown indication
     Dosage: SINCE LONG
     Route: 048
     Dates: end: 20230222
  2. TOPIRAMATE [Interacting]
     Active Substance: TOPIRAMATE
     Indication: Product used for unknown indication
     Route: 048
     Dates: start: 20230124, end: 20230207
  3. DOMPERIDONE [Concomitant]
     Active Substance: DOMPERIDONE
     Indication: Abdominal discomfort
     Dosage: SINCE LONG UNTIL FURTHER NOTICE (UFN)
     Route: 048
  4. RELPAX [Concomitant]
     Active Substance: ELETRIPTAN HYDROBROMIDE
     Indication: Migraine
     Dosage: SINCE LONG UNTIL FURTHER NOTICE (UFN)
     Route: 065

REACTIONS (3)
  - Inhibitory drug interaction [Unknown]
  - Dermatitis allergic [Recovered/Resolved]
  - Enzyme inhibition [Unknown]

NARRATIVE: CASE EVENT DATE: 20230221
